FAERS Safety Report 12506040 (Version 4)
Quarter: 2017Q1

REPORT INFORMATION
  Report Type: Spontaneous
  Country: US (occurrence: US)
  Receive Date: 20160628
  Receipt Date: 20170329
  Transmission Date: 20170428
  Serious: Yes (Other)
  Sender: FDA-Public Use
  Company Number: US-INCYTE CORPORATION-2016IN003681

PATIENT
  Sex: Female
  Weight: 62.6 kg

DRUGS (9)
  1. CITRACAL CREAMY BITES [Concomitant]
     Indication: PRODUCT USED FOR UNKNOWN INDICATION
     Dosage: UNK
  2. AMLODIPINE BESYLATE. [Concomitant]
     Active Substance: AMLODIPINE BESYLATE
     Indication: PRODUCT USED FOR UNKNOWN INDICATION
  3. CITRACAL [Concomitant]
     Active Substance: CALCIUM CITRATE
     Indication: PRODUCT USED FOR UNKNOWN INDICATION
     Dosage: UNK
  4. METOPROLOL TARTRATE. [Concomitant]
     Active Substance: METOPROLOL TARTRATE
     Indication: PRODUCT USED FOR UNKNOWN INDICATION
     Dosage: UNK
  5. SEVELAMER CARBONATE. [Concomitant]
     Active Substance: SEVELAMER CARBONATE
     Indication: PRODUCT USED FOR UNKNOWN INDICATION
  6. JAKAFI [Suspect]
     Active Substance: RUXOLITINIB
     Indication: LEUKOCYTOSIS
     Dosage: 10 MG, QD
     Route: 048
  7. JAKAFI [Suspect]
     Active Substance: RUXOLITINIB
     Dosage: 5 MG, BID
     Route: 048
     Dates: start: 20161017
  8. ALLOPURINOL. [Concomitant]
     Active Substance: ALLOPURINOL
     Indication: PRODUCT USED FOR UNKNOWN INDICATION
  9. JAKAFI [Suspect]
     Active Substance: RUXOLITINIB
     Indication: MYELOFIBROSIS
     Dosage: 10 MG, QOD
     Route: 048

REACTIONS (7)
  - Activities of daily living impaired [Recovering/Resolving]
  - Dyspnoea [Recovering/Resolving]
  - Haemoglobin decreased [Recovering/Resolving]
  - Dyspnoea exertional [Recovering/Resolving]
  - Off label use [Unknown]
  - Anaemia [Unknown]
  - Blood count abnormal [Unknown]

NARRATIVE: CASE EVENT DATE: 2017
